FAERS Safety Report 4393754-4 (Version None)
Quarter: 2004Q3

REPORT INFORMATION
  Report Type: 
  Country: None (occurrence: None)
  Receive Date: 20040701
  Receipt Date: 20040617
  Transmission Date: 20050211
  Serious: Yes (Disabling)
  Sender: FDA-Public Use
  Company Number: 04P-229-0264157-00

PATIENT
  Age: 54 Year
  Sex: Female

DRUGS (3)
  1. EPILIM CHRONO TABLETS (DEPAKENE) (SODIUM VALPROATE/VALPROIC ACID) (SOD [Suspect]
     Dosage: 500 MG, 1 IN 1 D, ORAL
     Route: 048
     Dates: start: 20000617
  2. CAPTOPRIL [Concomitant]
  3. ASPIRIN [Concomitant]

REACTIONS (3)
  - AMNESIA [None]
  - TIC [None]
  - TREMOR [None]
